FAERS Safety Report 22135329 (Version 1)
Quarter: 2023Q1

REPORT INFORMATION
  Report Type: Spontaneous
  Country: US (occurrence: US)
  Receive Date: 20230324
  Receipt Date: 20230324
  Transmission Date: 20230417
  Serious: Yes (Hospitalization, Other)
  Sender: FDA-Public Use
  Company Number: US-SA-SAC20230323000066

PATIENT
  Age: 62 Year
  Sex: Male

DRUGS (15)
  1. TAXOTERE [Suspect]
     Active Substance: DOCETAXEL
     Indication: Non-small cell lung cancer metastatic
     Dosage: 161 MG, Q3W
     Route: 042
     Dates: start: 20230203
  2. OBINUTUZUMAB [Suspect]
     Active Substance: OBINUTUZUMAB
     Dosage: 1000 MG
     Route: 042
     Dates: start: 20230117
  3. NAPTUMOMAB ESTAFENATOX [Suspect]
     Active Substance: NAPTUMOMAB ESTAFENATOX
     Dosage: 892 UG, Q3W
     Route: 042
     Dates: start: 20230130
  4. TESSALON [Concomitant]
     Active Substance: BENZONATATE
     Indication: Cough
  5. MYTUSSIN DAC [Concomitant]
     Indication: Cough
     Dosage: 10 ML, Q4H,AS NEEDED
     Route: 048
  6. MORPHINE [Concomitant]
     Active Substance: MORPHINE
     Indication: Cough
     Dosage: UNK, Q4H, AS NEEDED,
     Dates: start: 202201
  7. MORPHINE [Concomitant]
     Active Substance: MORPHINE
     Indication: Lung neoplasm malignant
     Dosage: 15 MG, Q6H
     Route: 048
  8. LEVOFLOXACIN [Concomitant]
     Active Substance: LEVOFLOXACIN
     Dosage: 750 MG, QD
     Route: 048
  9. ELIQUIS [Concomitant]
     Active Substance: APIXABAN
     Indication: Deep vein thrombosis
     Dosage: 2.5 MG, BID
     Route: 048
     Dates: start: 202208
  10. TRELEGY ELLIPTA [Concomitant]
     Active Substance: FLUTICASONE FUROATE\UMECLIDINIUM BROMIDE\VILANTEROL TRIFENATATE
     Indication: Cough
     Dosage: INHALED DAILY
     Dates: start: 2017
  11. TRELEGY ELLIPTA [Concomitant]
     Active Substance: FLUTICASONE FUROATE\UMECLIDINIUM BROMIDE\VILANTEROL TRIFENATATE
     Indication: Lung neoplasm malignant
  12. NEURONTIN [Concomitant]
     Active Substance: GABAPENTIN
     Indication: Neuropathy peripheral
     Dosage: 300 MG, HS, AT BEDTIME AS NEEDED
     Route: 048
     Dates: start: 202208
  13. ALBUTEROL\IPRATROPIUM [Concomitant]
     Active Substance: ALBUTEROL\IPRATROPIUM
     Indication: Cough
     Dosage: 3 ML,INHALED AS NEEDED
     Dates: start: 201708
  14. ALBUTEROL\IPRATROPIUM [Concomitant]
     Active Substance: ALBUTEROL\IPRATROPIUM
     Indication: Lung neoplasm malignant
  15. LEVOTHYROXINE [Concomitant]
     Active Substance: LEVOTHYROXINE
     Indication: Hypothyroidism
     Dosage: 12 UG, QD
     Route: 048
     Dates: start: 201708

REACTIONS (2)
  - Febrile neutropenia [Recovered/Resolved]
  - Abdominal pain [Recovered/Resolved]

NARRATIVE: CASE EVENT DATE: 20230209
